FAERS Safety Report 6869476-4 (Version None)
Quarter: 2010Q3

REPORT INFORMATION
  Report Type: 
  Country: None (occurrence: None)
  Receive Date: 20100721
  Receipt Date: 20100721
  Transmission Date: 20110219
  Serious: No
  Sender: FDA-Public Use
  Company Number: None

PATIENT
  Age: 77 Year
  Sex: Female
  Weight: 86.1834 kg

DRUGS (1)
  1. LIPITOR [Suspect]
     Indication: BLOOD CHOLESTEROL INCREASED
     Dosage: 40 MG DAILY
     Dates: start: 20050101, end: 20090401

REACTIONS (9)
  - ARTHRITIS [None]
  - CARDIAC FAILURE CONGESTIVE [None]
  - CONSTIPATION [None]
  - FALL [None]
  - MUSCLE INJURY [None]
  - NEUROPATHY PERIPHERAL [None]
  - QUADRIPLEGIA [None]
  - URETHRAL DISORDER [None]
  - URINARY TRACT INFECTION [None]
